FAERS Safety Report 26218773 (Version 1)
Quarter: 2025Q4

REPORT INFORMATION
  Report Type: Spontaneous
  Country: CH (occurrence: CH)
  Receive Date: 20251231
  Receipt Date: 20251231
  Transmission Date: 20260118
  Serious: No
  Sender: TRAVERE THERAPEUTICS
  Company Number: CH-BEH-2025229511

PATIENT
  Sex: Male

DRUGS (2)
  1. FILSPARI [Suspect]
     Active Substance: SPARSENTAN
     Indication: Product used for unknown indication
     Dosage: 200 MG
     Route: 065
     Dates: end: 2025
  2. FILSPARI [Suspect]
     Active Substance: SPARSENTAN
     Dosage: 400 UNK
     Route: 065
     Dates: start: 202507

REACTIONS (2)
  - Proteinuria [Unknown]
  - Hypotension [Unknown]

NARRATIVE: CASE EVENT DATE: 20250101
